FAERS Safety Report 7109611-6 (Version None)
Quarter: 2010Q4

REPORT INFORMATION
  Report Type: 
  Country: None (occurrence: None)
  Receive Date: 20101118
  Receipt Date: 20090803
  Transmission Date: 20110411
  Serious: No
  Sender: FDA-Public Use
  Company Number: 2009BI024372

PATIENT
  Age: 55 Year
  Sex: Female

DRUGS (1)
  1. TYSABRI [Suspect]
     Indication: MULTIPLE SCLEROSIS
     Route: 042
     Dates: start: 20080606

REACTIONS (7)
  - FOOT FRACTURE [None]
  - INCISION SITE PAIN [None]
  - INITIAL INSOMNIA [None]
  - MEMORY IMPAIRMENT [None]
  - PAIN [None]
  - POOR VENOUS ACCESS [None]
  - VEIN DISORDER [None]
